FAERS Safety Report 10046790 (Version 1)
Quarter: 2014Q1

REPORT INFORMATION
  Report Type: Spontaneous
  Country: US (occurrence: None)
  Receive Date: 20140328
  Receipt Date: 20140328
  Transmission Date: 20141002
  Serious: Yes (Other)
  Sender: FDA-Public Use
  Company Number: None

PATIENT
  Age: 91 Year
  Sex: Female
  Weight: 51.71 kg

DRUGS (10)
  1. DIPHENHYDRAMINE HYDROCHLORIDE\HYDROCORTISONE\NYSTATIN [Suspect]
     Indication: DRUG HYPERSENSITIVITY
     Dosage: SWISH + SPIT
     Route: 048
     Dates: start: 20140304, end: 20140318
  2. THYROID [Concomitant]
  3. AMBIEN [Concomitant]
  4. SALMON NOSE SPRAY [Concomitant]
  5. ASPIRIN [Concomitant]
  6. VITAMIN E [Concomitant]
  7. MULTI VITAMIN [Concomitant]
  8. CALCIUM [Concomitant]
  9. VITAMIN B-12 [Concomitant]
  10. VITAMIN D [Concomitant]

REACTIONS (1)
  - Unevaluable event [None]
